FAERS Safety Report 18755425 (Version 3)
Quarter: 2021Q4

REPORT INFORMATION
  Report Type: Report from Study
  Country: US (occurrence: US)
  Receive Date: 20210119
  Receipt Date: 20211122
  Transmission Date: 20220303
  Serious: Yes (Death, Other)
  Sender: FDA-Public Use
  Company Number: US-TAKEDA-2021TUS002680

PATIENT
  Sex: Female

DRUGS (1)
  1. PONATINIB [Suspect]
     Active Substance: PONATINIB
     Indication: Acute lymphocytic leukaemia recurrent
     Dosage: 30 MILLIGRAM, QD
     Route: 048
     Dates: end: 20210705

REACTIONS (3)
  - Death [Fatal]
  - Acute lymphocytic leukaemia recurrent [Unknown]
  - Adverse event [Unknown]
